FAERS Safety Report 5451827-9 (Version None)
Quarter: 2007Q3

REPORT INFORMATION
  Report Type: 
  Country: None (occurrence: None)
  Receive Date: 20070912
  Receipt Date: 20070828
  Transmission Date: 20080115
  Serious: Yes (Death)
  Sender: FDA-Public Use
  Company Number: 100#08#2007-03358

PATIENT
  Age: 23 Year
  Sex: Male

DRUGS (4)
  1. METHOTREXATE [Suspect]
     Indication: BONE SARCOMA
  2. CISPLATIN [Suspect]
     Indication: BONE SARCOMA
  3. DOXORUBICIN HCL [Suspect]
     Indication: BONE SARCOMA
  4. IFOSFAMIDE [Suspect]
     Indication: BONE SARCOMA

REACTIONS (2)
  - ACUTE MYELOID LEUKAEMIA [None]
  - MYELODYSPLASTIC SYNDROME [None]
